FAERS Safety Report 4995375-9 (Version None)
Quarter: 2006Q2

REPORT INFORMATION
  Report Type: 
  Country: None (occurrence: None)
  Receive Date: 20060503
  Receipt Date: 20060424
  Transmission Date: 20061013
  Serious: Yes (Hospitalization)
  Sender: FDA-Public Use
  Company Number: 7726

PATIENT
  Age: 83 Year
  Sex: Male

DRUGS (1)
  1. NITROGLYCERIN [Suspect]
     Indication: ANGINA PECTORIS
     Dosage: PRN

REACTIONS (3)
  - CHEST PAIN [None]
  - HYPERHIDROSIS [None]
  - THERAPY NON-RESPONDER [None]
